FAERS Safety Report 25385743 (Version 1)
Quarter: 2025Q2

REPORT INFORMATION
  Report Type: Spontaneous
  Country: GB (occurrence: GB)
  Receive Date: 20250602
  Receipt Date: 20250602
  Transmission Date: 20250716
  Serious: Yes (Other)
  Sender: PFIZER
  Company Number: None

PATIENT
  Age: 55 Year
  Sex: Female

DRUGS (8)
  1. ESTROGENS, CONJUGATED [Suspect]
     Active Substance: ESTROGENS, CONJUGATED
     Dosage: 625 MICROGRAMS OD 84 TABLET - NOT TO BE RESUMED UNTIL AFTER ANGIO CT OR IF EVER
     Dates: start: 20240913
  2. AMLODIPINE [Concomitant]
     Active Substance: AMLODIPINE BESYLATE
  3. FLUOXETINE [Concomitant]
     Active Substance: FLUOXETINE HYDROCHLORIDE
     Dosage: 20MG CAPSULE, ONE TO BE TAKEN EACH DAY, 28 CAPSULE/STATES IS STILL TAKING OM
     Dates: start: 20231115
  4. RAMIPRIL [Concomitant]
     Active Substance: RAMIPRIL
     Dosage: 10MG CAPSULE, ONE TO BE TAKEN EACH DAY,3 X 28 CAPSULE/RESTARTED AT LOWER DOSE
     Dates: start: 20240913
  5. OMEPRAZOLE [Concomitant]
     Active Substance: OMEPRAZOLE
     Dosage: 20MG GASTRO-RESISTANT CAPSULE, ONE TO BE TAKEN EACH DAY,28 CAPSULE
     Dates: start: 20241009
  6. FELODIPINE [Concomitant]
     Active Substance: FELODIPINE
     Dosage: ONE TO BE TAKEN EACH MORNING-TOTAL DOSAGE 7.5 MG DAILY,84 TABLET/TO STAY ON AMLODIPINE
     Dates: start: 20241009
  7. FELODIPINE [Concomitant]
     Active Substance: FELODIPINE
     Dosage: ONE TO BE TAKEN EACH MORNING,84 TABLET - TO STAY ON AMLODIPINE
     Dates: start: 20240801
  8. BECLOMETHASONE DIPROPIONATE [Concomitant]
     Active Substance: BECLOMETHASONE DIPROPIONATE
     Dosage: FREQ:12 HOURS; 200MICROGRAMS/DOSE INHALER, ONE PUFF TO BE INHALED TWICE A DAY
     Route: 055
     Dates: start: 20241009

REACTIONS (1)
  - Acute coronary syndrome [Unknown]
